FAERS Safety Report 8484805-6 (Version None)
Quarter: 2012Q3

REPORT INFORMATION
  Report Type: 
  Country: None (occurrence: None)
  Receive Date: 20120703
  Receipt Date: 20120625
  Transmission Date: 20120928
  Serious: Yes (Other)
  Sender: FDA-Public Use
  Company Number: MX-JNJFOC-20120700261

PATIENT
  Age: 52 Year
  Sex: Female
  Weight: 67 kg

DRUGS (2)
  1. XARELTO [Suspect]
     Indication: VENOUS INSUFFICIENCY
     Route: 048
     Dates: start: 20120604
  2. INDERALICI [Concomitant]
     Indication: HYPERTENSION

REACTIONS (2)
  - BLOOD PRESSURE INCREASED [None]
  - PARAESTHESIA [None]
